FAERS Safety Report 7761976-8 (Version None)
Quarter: 2011Q3

REPORT INFORMATION
  Report Type: 
  Country: None (occurrence: None)
  Receive Date: 20110920
  Receipt Date: 20110908
  Transmission Date: 20111222
  Serious: Yes (Hospitalization, Other)
  Sender: FDA-Public Use
  Company Number: US-BAYER-201032547NA

PATIENT
  Age: 47 Year
  Sex: Female
  Weight: 56.689 kg

DRUGS (11)
  1. LEXAPRO [Concomitant]
     Indication: DEPRESSION
     Dosage: UNK
     Route: 048
     Dates: start: 20010101
  2. AMITRIPTYLINE HCL [Concomitant]
     Indication: DEPRESSION
     Dosage: 50 MG, UNK
     Route: 048
     Dates: start: 19980101
  3. YASMIN [Suspect]
     Indication: CONTRACEPTION
     Route: 048
     Dates: start: 20051014, end: 20080813
  4. LEVOTHYROXINE SODIUM [Concomitant]
     Indication: HYPOTHYROIDISM
     Dosage: UNK
     Route: 048
     Dates: start: 19980101
  5. MULTI-VITAMINS [Concomitant]
  6. CYCLOBENZAPRINE [Concomitant]
     Indication: MYALGIA
     Dosage: 30 MG, UNK
     Route: 048
     Dates: start: 20040601, end: 20091001
  7. VITAMIN B-12 [Concomitant]
     Route: 048
  8. CYCLOBENZAPRINE [Concomitant]
     Indication: MUSCLE SPASMS
  9. ASPIRIN [Concomitant]
     Dosage: 81 MG, UNK
     Route: 048
  10. HERBAL SUPPLEMENTS [Concomitant]
     Route: 048
  11. DROSPIRENONE AND ETHINYL ESTRADIOL [Suspect]
     Indication: CONTRACEPTION
     Dosage: UNK
     Dates: start: 20080801

REACTIONS (7)
  - CEREBROVASCULAR ACCIDENT [None]
  - HEADACHE [None]
  - DIZZINESS [None]
  - AMNESIA [None]
  - COMPLEX PARTIAL SEIZURES [None]
  - CONVULSION [None]
  - FATIGUE [None]
